FAERS Safety Report 8155423-4 (Version None)
Quarter: 2012Q1

REPORT INFORMATION
  Report Type: 
  Country: None (occurrence: None)
  Receive Date: 20120207
  Receipt Date: 20120123
  Transmission Date: 20120608
  Serious: Yes (Hospitalization)
  Sender: FDA-Public Use
  Company Number: 2011029509

PATIENT
  Age: 83 Year
  Sex: Male

DRUGS (12)
  1. CLAIRYQ (IMMUNOGLOBULIN HUMAN NORMAL) [Suspect]
     Dosage: 33 G QD
     Route: 042
     Dates: start: 20110629, end: 20110701
  2. ENANTONE /00726901/ (LEUPRORELIN) [Concomitant]
  3. INDOCOLLYRE (INDOMETACIN) [Concomitant]
  4. NEO-MERCAZOLE TAB [Concomitant]
  5. FLUDROCORTISONE ACETATE [Concomitant]
  6. PRIVIGEN [Suspect]
     Indication: ORTHOSTATIC HYPOTENSION
     Dosage: 33 G QD
     Route: 042
     Dates: start: 20110706, end: 20110707
  7. VALACYCLOVIR HYDROCHLORIDE [Concomitant]
  8. TRUSOPT [Concomitant]
  9. CELLUVISC /00007002/ (CARMELLOSE SODIUM) [Concomitant]
  10. TOBREX [Concomitant]
  11. TIMOLOL MALEATE [Concomitant]
  12. GUTRON (MIDODRINE HYDROCHLORIDE) [Concomitant]

REACTIONS (11)
  - PYREXIA [None]
  - OFF LABEL USE [None]
  - GENERAL PHYSICAL HEALTH DETERIORATION [None]
  - SKIN EXFOLIATION [None]
  - ECZEMA [None]
  - PRURITUS [None]
  - ORTHOSTATIC HYPOTENSION [None]
  - NEUTROPHIL COUNT INCREASED [None]
  - CONDITION AGGRAVATED [None]
  - RASH ERYTHEMATOUS [None]
  - HEADACHE [None]
